FAERS Safety Report 24561613 (Version 1)
Quarter: 2024Q4

REPORT INFORMATION
  Report Type: Spontaneous
  Country: JP (occurrence: JP)
  Receive Date: 20241029
  Receipt Date: 20241029
  Transmission Date: 20250115
  Serious: Yes (Other)
  Sender: ALEXION PHARMACEUTICALS
  Company Number: JP-ASTRAZENECA-240108145_013020_P_1

PATIENT

DRUGS (8)
  1. OSIMERTINIB [Suspect]
     Active Substance: OSIMERTINIB
     Indication: Non-small cell lung cancer
     Dosage: DOSE UNKNOWN
  2. OSIMERTINIB [Concomitant]
     Active Substance: OSIMERTINIB
     Indication: Non-small cell lung cancer
     Dosage: DOSE UNKNOWN
  3. CARBOPLATIN [Concomitant]
     Active Substance: CARBOPLATIN
     Indication: Non-small cell lung cancer
     Dosage: DOSE UNKNOWN
     Route: 065
  4. PACLITAXEL [Concomitant]
     Active Substance: PACLITAXEL
     Indication: Non-small cell lung cancer
     Dosage: DOSE UNKNOWN
     Route: 065
  5. TEGAFUR [Concomitant]
     Active Substance: TEGAFUR
     Indication: Non-small cell lung cancer
     Dosage: DOSE UNKNOWN
     Route: 065
  6. GEMCITABINE [Concomitant]
     Active Substance: GEMCITABINE
     Indication: Non-small cell lung cancer
     Dosage: DOSE UNKNOWN
     Route: 065
  7. DOCETAXEL [Concomitant]
     Active Substance: DOCETAXEL
     Indication: Non-small cell lung cancer
     Dosage: DOSE UNKNOWN
     Route: 065
  8. AMRUBICIN HYDROCHLORIDE [Concomitant]
     Active Substance: AMRUBICIN HYDROCHLORIDE
     Indication: Non-small cell lung cancer
     Dosage: DOSE UNKNOWN
     Route: 065

REACTIONS (1)
  - Small cell lung cancer [Unknown]
